FAERS Safety Report 12347331 (Version 1)
Quarter: 2016Q2

REPORT INFORMATION
  Report Type: Report from Study
  Country: US (occurrence: US)
  Receive Date: 20160509
  Receipt Date: 20160509
  Transmission Date: 20160815
  Serious: Yes (Hospitalization)
  Sender: FDA-Public Use
  Company Number: US-UCBSA-2016015477

PATIENT
  Age: 3 Month
  Sex: Female

DRUGS (1)
  1. LEVETIRACETAM. [Suspect]
     Active Substance: LEVETIRACETAM
     Indication: SEIZURE
     Dosage: 8 ML,(800 MG OF A 100 MG/ML)

REACTIONS (4)
  - Drug prescribing error [Unknown]
  - Respiratory tract infection [Recovered/Resolved]
  - Drug dispensing error [Unknown]
  - Overdose [Unknown]
